FAERS Safety Report 10089402 (Version 3)
Quarter: 2014Q3

REPORT INFORMATION
  Report Type: Report from Study
  Country: JP (occurrence: JP)
  Receive Date: 20140421
  Receipt Date: 20140721
  Transmission Date: 20150326
  Serious: Yes (Death, Hospitalization)
  Sender: FDA-Public Use
  Company Number: JP-SA-2014SA049658

PATIENT
  Age: 14 Year
  Sex: Female
  Weight: 40.3 kg

DRUGS (27)
  1. ALKERAN [Suspect]
     Active Substance: MELPHALAN
     Indication: BONE MARROW CONDITIONING REGIMEN
     Route: 065
     Dates: start: 20121015, end: 20121016
  2. SOLU-MEDROL [Suspect]
     Active Substance: METHYLPREDNISOLONE SODIUM SUCCINATE
     Indication: THERAPEUTIC PROCEDURE
     Route: 065
     Dates: start: 20121013, end: 20121119
  3. PARACETAMOL [Concomitant]
     Active Substance: ACETAMINOPHEN
     Indication: PROPHYLAXIS
     Dates: start: 20121013, end: 20121016
  4. GRANISETRON [Concomitant]
     Active Substance: GRANISETRON
     Indication: PROPHYLAXIS
     Dates: start: 20121011, end: 20121017
  5. SOLU-MEDROL [Suspect]
     Active Substance: METHYLPREDNISOLONE SODIUM SUCCINATE
     Indication: PROPHYLAXIS
     Route: 065
     Dates: start: 20121013, end: 20121119
  6. CHLOR-TRIMETON [Concomitant]
     Active Substance: CHLORPHENIRAMINE MALEATE
     Indication: PROPHYLAXIS
     Dates: start: 20121013, end: 20121016
  7. ALL OTHER THERAPEUTIC PRODUCTS [Concomitant]
     Active Substance: UNSPECIFIED INGREDIENT
     Indication: BONE MARROW CONDITIONING REGIMEN
     Dates: start: 20121018, end: 20121018
  8. METHOTREXATE [Concomitant]
     Active Substance: METHOTREXATE
     Indication: PROPHYLAXIS AGAINST GRAFT VERSUS HOST DISEASE
     Dates: start: 20121019, end: 20121029
  9. FUNGUARD [Concomitant]
     Active Substance: MICAFUNGIN SODIUM
     Indication: INFECTION PROPHYLAXIS
     Dates: start: 20120813, end: 20130611
  10. THYMOGLOBULINE [Suspect]
     Active Substance: LAPINE T-LYMPHOCYTE IMMUNE GLOBULIN
     Indication: BONE MARROW CONDITIONING REGIMEN
     Route: 042
     Dates: start: 20121013, end: 20121016
  11. SOLU-MEDROL [Suspect]
     Active Substance: METHYLPREDNISOLONE SODIUM SUCCINATE
     Indication: PROPHYLAXIS
     Route: 065
     Dates: start: 20130305, end: 20130415
  12. PROGRAF [Suspect]
     Active Substance: TACROLIMUS\TACROLIMUS ANHYDROUS
     Indication: GRAFT VERSUS HOST DISEASE
     Route: 065
     Dates: start: 20121017, end: 20130517
  13. FLUDARA [Suspect]
     Active Substance: FLUDARABINE PHOSPHATE
     Indication: BONE MARROW CONDITIONING REGIMEN
     Route: 065
     Dates: start: 20121011, end: 20121014
  14. BACCIDAL [Concomitant]
     Indication: INFECTION PROPHYLAXIS
     Dates: start: 20121011, end: 20121109
  15. SOLU-CORTEF [Concomitant]
     Active Substance: HYDROCORTISONE SODIUM SUCCINATE
     Indication: BONE MARROW CONDITIONING REGIMEN
     Dates: start: 20121018, end: 20121018
  16. CEFEPIME [Concomitant]
     Active Substance: CEFEPIME\CEFEPIME HYDROCHLORIDE
     Indication: INFECTION PROPHYLAXIS
     Dates: start: 20121005, end: 20121018
  17. SOLU-MEDROL [Suspect]
     Active Substance: METHYLPREDNISOLONE SODIUM SUCCINATE
     Indication: THERAPEUTIC PROCEDURE
     Route: 065
     Dates: start: 20130305, end: 20130415
  18. PREDONINE [Suspect]
     Active Substance: PREDNISOLONE\PREDNISOLONE ACETATE\PREDNISOLONE SODIUM SUCCINATE
     Indication: GRAFT VERSUS HOST DISEASE
     Route: 065
     Dates: start: 20121120, end: 20130120
  19. URSO [Concomitant]
     Active Substance: URSODIOL
     Indication: PROPHYLAXIS
     Dates: start: 20121011, end: 20121224
  20. GLYCEOL [Concomitant]
     Active Substance: GLYCERIN
     Indication: PROPHYLAXIS
     Dates: start: 20121017, end: 20121017
  21. DECADRON [Concomitant]
     Active Substance: DEXAMETHASONE
     Indication: PROPHYLAXIS
     Dates: start: 20121017, end: 20121017
  22. DENOSINE [Suspect]
     Active Substance: GANCICLOVIR
     Indication: CYTOMEGALOVIRUS VIRAEMIA
     Route: 065
     Dates: start: 20121128, end: 20130515
  23. ATARAX-P [Concomitant]
     Active Substance: HYDROXYZINE HYDROCHLORIDE
     Indication: BONE MARROW CONDITIONING REGIMEN
     Dates: start: 20121018, end: 20121018
  24. ORGARAN [Concomitant]
     Active Substance: DANAPAROID SODIUM
     Indication: PROPHYLAXIS
     Dates: start: 20121011, end: 20121122
  25. FIRSTCIN [Concomitant]
     Active Substance: CEFOZOPRAN HYDROCHLORIDE
     Indication: INFECTION PROPHYLAXIS
     Dates: start: 20121019, end: 20121029
  26. AMINOACETIC ACID/IMMUNOGLOBULIN HUMAN NORMAL/MALTOSE [Concomitant]
     Indication: INFECTION PROPHYLAXIS
     Dates: start: 20121016, end: 20130611
  27. ZOVIRAX [Concomitant]
     Active Substance: ACYCLOVIR
     Indication: INFECTION PROPHYLAXIS
     Dates: start: 20121011, end: 20121219

REACTIONS (13)
  - Aspergillus infection [Fatal]
  - Neutropenia [Not Recovered/Not Resolved]
  - Diarrhoea [Recovered/Resolved]
  - Epstein-Barr virus infection [Not Recovered/Not Resolved]
  - Epilepsy [Recovering/Resolving]
  - Cytomegalovirus viraemia [Not Recovered/Not Resolved]
  - Febrile neutropenia [Recovered/Resolved]
  - Pneumonia [Not Recovered/Not Resolved]
  - Brain oedema [Not Recovered/Not Resolved]
  - Pyrexia [Recovered/Resolved]
  - Acute graft versus host disease [Recovering/Resolving]
  - Gastroenteritis norovirus [Recovering/Resolving]
  - Hyperammonaemia [Not Recovered/Not Resolved]

NARRATIVE: CASE EVENT DATE: 20121013
